FAERS Safety Report 15223099 (Version 1)
Quarter: 2018Q3

REPORT INFORMATION
  Report Type: Spontaneous
  Country: CA (occurrence: CA)
  Receive Date: 20180731
  Receipt Date: 20180731
  Transmission Date: 20181010
  Serious: Yes (Life-Threatening, Hospitalization, Other)
  Sender: FDA-Public Use
  Company Number: CA-JNJFOC-20180512345

PATIENT
  Age: 76 Year
  Sex: Female
  Weight: 39 kg

DRUGS (1)
  1. IMBRUVICA [Suspect]
     Active Substance: IBRUTINIB
     Indication: CHRONIC LYMPHOCYTIC LEUKAEMIA
     Route: 048
     Dates: start: 201707, end: 20171125

REACTIONS (2)
  - Dysentery [Unknown]
  - Herpes simplex encephalitis [Recovered/Resolved]

NARRATIVE: CASE EVENT DATE: 201711
